FAERS Safety Report 20633872 (Version 1)
Quarter: 2022Q1

REPORT INFORMATION
  Report Type: Spontaneous
  Country: US (occurrence: US)
  Receive Date: 20220324
  Receipt Date: 20220324
  Transmission Date: 20220423
  Serious: No
  Sender: FDA-Public Use
  Company Number: US-GILEAD-2022-0574812

PATIENT

DRUGS (4)
  1. GENVOYA [Suspect]
     Active Substance: COBICISTAT\ELVITEGRAVIR\EMTRICITABINE\TENOFOVIR ALAFENAMIDE FUMARATE
     Indication: HIV infection
     Dosage: 1 DOSAGE FORM, QD
     Route: 048
  2. ALFUZOSIN HYDROCHLORIDE [Concomitant]
     Active Substance: ALFUZOSIN HYDROCHLORIDE
  3. PREZISTA [Concomitant]
     Active Substance: DARUNAVIR ETHANOLATE
  4. ENTECAVIR [Concomitant]
     Active Substance: ENTECAVIR

REACTIONS (1)
  - Product dose omission issue [Unknown]
